FAERS Safety Report 7003664-1 (Version None)
Quarter: 2010Q3

REPORT INFORMATION
  Report Type: 
  Country: None (occurrence: None)
  Receive Date: 20100920
  Receipt Date: 20090626
  Transmission Date: 20110219
  Serious: No
  Sender: FDA-Public Use
  Company Number: US-WYE-H09100709

PATIENT
  Sex: Female
  Weight: 79.45 kg

DRUGS (5)
  1. PANTOPRAZOLE [Suspect]
     Indication: GASTROOESOPHAGEAL REFLUX DISEASE
     Route: 048
     Dates: start: 20070101, end: 20080701
  2. PANTOPRAZOLE [Suspect]
     Route: 048
     Dates: start: 20080701
  3. PANTOPRAZOLE [Suspect]
     Route: 048
     Dates: start: 20090421
  4. BENICAR [Concomitant]
  5. LIPITOR [Concomitant]

REACTIONS (2)
  - DRUG EFFECT DECREASED [None]
  - PRODUCT QUALITY ISSUE [None]
